FAERS Safety Report 7241612-X (Version None)
Quarter: 2011Q1

REPORT INFORMATION
  Report Type: 
  Country: None (occurrence: None)
  Receive Date: 20110124
  Receipt Date: 20110118
  Transmission Date: 20110831
  Serious: Yes (Death, Other)
  Sender: FDA-Public Use
  Company Number: IE-SANOFI-AVENTIS-2011SA003690

PATIENT
  Age: 48 Year
  Sex: Female

DRUGS (3)
  1. TRASTUZUMAB [Suspect]
  2. LAPATINIB [Suspect]
     Route: 048
  3. DOCETAXEL [Suspect]
     Route: 041

REACTIONS (5)
  - RESPIRATORY FAILURE [None]
  - ATELECTASIS [None]
  - PNEUMOMEDIASTINUM [None]
  - PNEUMOTHORAX [None]
  - PNEUMONIA [None]
